FAERS Safety Report 4552399-3 (Version None)
Quarter: 2005Q1

REPORT INFORMATION
  Report Type: 
  Country: None (occurrence: None)
  Receive Date: 20050114
  Receipt Date: 20040426
  Transmission Date: 20050727
  Serious: No
  Sender: FDA-Public Use
  Company Number: US-GLAXOSMITHKLINE-A0508407A

PATIENT
  Sex: Female

DRUGS (2)
  1. IMITREX [Suspect]
     Indication: MIGRAINE
  2. FIORINAL [Concomitant]
     Indication: MIGRAINE

REACTIONS (2)
  - DRUG INEFFECTIVE [None]
  - NAUSEA [None]
